FAERS Safety Report 13301355 (Version 5)
Quarter: 2018Q3

REPORT INFORMATION
  Report Type: Spontaneous
  Country: US (occurrence: US)
  Receive Date: 20170307
  Receipt Date: 20180717
  Transmission Date: 20181010
  Serious: No
  Sender: FDA-Public Use
  Company Number: US-PFIZER INC-2017095190

PATIENT
  Age: 66 Year
  Sex: Female
  Weight: 89 kg

DRUGS (3)
  1. IBRANCE [Suspect]
     Active Substance: PALBOCICLIB
     Indication: BREAST CANCER METASTATIC
     Dosage: 125 MG, CYCLIC (DAYS 1?21 Q28 DAYS)
     Route: 048
     Dates: start: 20170216
  2. IBRANCE [Suspect]
     Active Substance: PALBOCICLIB
     Dosage: 125 MG, CYCLIC (DAYS 1?21 Q28 DAYS)
     Route: 048
  3. IBRANCE [Suspect]
     Active Substance: PALBOCICLIB
     Dosage: 125 MG, CYCLIC (DAYS 1?21 Q28 DAYS)
     Route: 048

REACTIONS (14)
  - Rash pruritic [Not Recovered/Not Resolved]
  - Nasopharyngitis [Not Recovered/Not Resolved]
  - Chest pain [Unknown]
  - Neoplasm progression [Unknown]
  - Sinusitis [Unknown]
  - Sputum discoloured [Unknown]
  - Productive cough [Unknown]
  - Poor quality drug administered [Unknown]
  - Hyperhidrosis [Not Recovered/Not Resolved]
  - Pain [Unknown]
  - White blood cell count decreased [Unknown]
  - Fungal infection [Unknown]
  - Product physical issue [Unknown]
  - Hot flush [Not Recovered/Not Resolved]

NARRATIVE: CASE EVENT DATE: 201703
